FAERS Safety Report 4382268-3 (Version None)
Quarter: 2004Q2

REPORT INFORMATION
  Report Type: 
  Country: None (occurrence: None)
  Receive Date: 20040615
  Receipt Date: 20040603
  Transmission Date: 20050107
  Serious: Yes (Death, Hospitalization)
  Sender: FDA-Public Use
  Company Number: 163-20785-04050544

PATIENT
  Age: 85 Year
  Sex: Male

DRUGS (1)
  1. THALOMID [Suspect]
     Indication: MULTIPLE MYELOMA
     Dosage: 150 MG, DAILY, ORAL
     Route: 048
     Dates: start: 20030409, end: 20040101

REACTIONS (4)
  - BONE MARROW DISORDER [None]
  - CARCINOMA [None]
  - DYSPNOEA [None]
  - PNEUMONIA [None]
